FAERS Safety Report 11784503 (Version 3)
Quarter: 2016Q1

REPORT INFORMATION
  Report Type: Spontaneous
  Country: CA (occurrence: CA)
  Receive Date: 20151129
  Receipt Date: 20160311
  Transmission Date: 20160525
  Serious: Yes (Other)
  Sender: FDA-Public Use
  Company Number: CA-ROCHE-1666156

PATIENT
  Age: 64 Year
  Sex: Male

DRUGS (5)
  1. VALTREX [Concomitant]
     Active Substance: VALACYCLOVIR HYDROCHLORIDE
  2. SPIRIVA [Concomitant]
     Active Substance: TIOTROPIUM BROMIDE MONOHYDRATE
  3. SYMBICORT [Concomitant]
     Active Substance: BUDESONIDE\FORMOTEROL FUMARATE DIHYDRATE
  4. XOLAIR [Suspect]
     Active Substance: OMALIZUMAB
     Route: 058
     Dates: start: 20160307
  5. XOLAIR [Suspect]
     Active Substance: OMALIZUMAB
     Indication: ASTHMA
     Route: 058
     Dates: start: 20150623

REACTIONS (10)
  - Inguinal hernia [Unknown]
  - Weight increased [Unknown]
  - Hiatus hernia [Unknown]
  - Hyperphagia [Unknown]
  - Asthma [Recovering/Resolving]
  - Pulmonary pain [Recovering/Resolving]
  - Cough [Unknown]
  - Exercise tolerance increased [Unknown]
  - Hypoventilation [Unknown]
  - Rales [Unknown]

NARRATIVE: CASE EVENT DATE: 20151211
